FAERS Safety Report 13983032 (Version 1)
Quarter: 2017Q3

REPORT INFORMATION
  Report Type: Other
  Country: CA (occurrence: CA)
  Receive Date: 20170918
  Receipt Date: 20170918
  Transmission Date: 20171128
  Serious: Yes (Disabling, Other)
  Sender: FDA-Public Use
  Company Number: CA-APOTEX-2017AP018177

PATIENT
  Age: 61 Year
  Sex: Female
  Weight: 77 kg

DRUGS (3)
  1. APO CARBAMAZEPINE TAB 200MG [Suspect]
     Active Substance: CARBAMAZEPINE
     Indication: SEIZURE
     Route: 048
  2. PHENYTOIN. [Suspect]
     Active Substance: PHENYTOIN
     Indication: SEIZURE
     Route: 048
  3. PHENOBARBITAL. [Suspect]
     Active Substance: PHENOBARBITAL
     Indication: SEIZURE
     Route: 048

REACTIONS (2)
  - Seizure [Recovered/Resolved]
  - Product substitution issue [Recovered/Resolved]
